FAERS Safety Report 5796622-6 (Version None)
Quarter: 2008Q3

REPORT INFORMATION
  Report Type: 
  Country: None (occurrence: None)
  Receive Date: 20080701
  Receipt Date: 20080619
  Transmission Date: 20090109
  Serious: Yes (Other)
  Sender: FDA-Public Use
  Company Number: US-ROCHE-563363

PATIENT
  Sex: Male

DRUGS (3)
  1. PEG-INTERFERON A-2A (RO 25-8310) [Suspect]
     Dosage: FORMULATION: PREFILLED SYRINGE (PFS)
     Route: 065
     Dates: start: 20080421
  2. RIBAVIRIN [Suspect]
     Dosage: MISSED A FEW DOSES OF RIBAVIRIN.
     Route: 065
     Dates: start: 20080421
  3. ZOLOFT [Concomitant]
     Indication: DEPRESSION

REACTIONS (11)
  - DENTAL CARIES [None]
  - DIARRHOEA [None]
  - DRUG DOSE OMISSION [None]
  - FATIGUE [None]
  - INJECTION SITE RASH [None]
  - INSOMNIA [None]
  - MEMORY IMPAIRMENT [None]
  - PAIN [None]
  - SUICIDAL IDEATION [None]
  - SUICIDE ATTEMPT [None]
  - TOOTH EXTRACTION [None]
